FAERS Safety Report 7721224-1 (Version None)
Quarter: 2011Q3

REPORT INFORMATION
  Report Type: 
  Country: None (occurrence: None)
  Receive Date: 20110831
  Receipt Date: 20110108
  Transmission Date: 20111222
  Serious: No
  Sender: FDA-Public Use
  Company Number: US-BAYER-2011-003118

PATIENT
  Sex: Female

DRUGS (2)
  1. MIRENA [Suspect]
     Indication: HAEMORRHAGE
  2. MIRENA [Suspect]
     Indication: CONTRACEPTION

REACTIONS (1)
  - WEIGHT LOSS POOR [None]
